FAERS Safety Report 14851825 (Version 1)
Quarter: 2018Q2

REPORT INFORMATION
  Report Type: Spontaneous
  Country: FR (occurrence: FR)
  Receive Date: 20180507
  Receipt Date: 20180507
  Transmission Date: 20180711
  Serious: Yes (Other)
  Sender: FDA-Public Use
  Company Number: FR-MERCK KGAA-2047270

PATIENT
  Age: 63 Year
  Sex: Female

DRUGS (1)
  1. NOVOTHYROX [Suspect]
     Active Substance: LEVOTHYROXINE SODIUM
     Indication: PRODUCT USED FOR UNKNOWN INDICATION

REACTIONS (18)
  - Myalgia [None]
  - Decreased interest [None]
  - Tremor [None]
  - Headache [None]
  - Arthralgia [None]
  - Asthenia [None]
  - Blood pressure fluctuation [None]
  - Alopecia [None]
  - Apathy [None]
  - Insomnia [None]
  - Dizziness [None]
  - Impaired work ability [None]
  - Anxiety [None]
  - Fatigue [None]
  - Loss of personal independence in daily activities [None]
  - Social avoidant behaviour [None]
  - Angina pectoris [None]
  - Depression [None]

NARRATIVE: CASE EVENT DATE: 2017
